FAERS Safety Report 8480919-5 (Version None)
Quarter: 2012Q3

REPORT INFORMATION
  Report Type: 
  Country: None (occurrence: None)
  Receive Date: 20120702
  Receipt Date: 20120621
  Transmission Date: 20120928
  Serious: Yes (Disabling, Other)
  Sender: FDA-Public Use
  Company Number: IT-CELGENEUS-083-21880-12033385

PATIENT
  Sex: Female

DRUGS (3)
  1. REVLIMID [Suspect]
     Dosage: 5 MILLIGRAM
     Route: 048
     Dates: start: 20100706, end: 20120327
  2. FEMARA [Concomitant]
     Route: 065
  3. FRAGMIN [Concomitant]
     Route: 058

REACTIONS (1)
  - CONTRALATERAL BREAST CANCER [None]
